FAERS Safety Report 22323604 (Version 1)
Quarter: 2023Q2

REPORT INFORMATION
  Report Type: Spontaneous
  Country: BR (occurrence: BR)
  Receive Date: 20230516
  Receipt Date: 20230516
  Transmission Date: 20230722
  Serious: Yes (Hospitalization, Other)
  Sender: FDA-Public Use
  Company Number: BR-002147023-NVSC2023BR107932

PATIENT
  Age: 30 Year
  Sex: Male

DRUGS (8)
  1. KYMRIAH [Suspect]
     Active Substance: TISAGENLECLEUCEL
     Indication: Diffuse large B-cell lymphoma
     Dosage: UNK, ONCE/SINGLE
     Route: 042
  2. EPOCH [Concomitant]
     Active Substance: ALCOHOL\SALICYLIC ACID
     Indication: Product used for unknown indication
     Dosage: UNK
     Route: 065
     Dates: start: 20230321
  3. METHYLPREDNISOLONE [Concomitant]
     Active Substance: METHYLPREDNISOLONE
     Indication: Product used for unknown indication
     Dosage: 1 MG/KG (INITIATED METHYL CORTICOSTEROID ON 19 APR)
     Route: 065
  4. METHYLPREDNISOLONE [Concomitant]
     Active Substance: METHYLPREDNISOLONE
     Dosage: 1 MG (ON 20 APR? MAINTAINED FOR 3 DAYS)
     Route: 065
  5. METHYLPREDNISOLONE [Concomitant]
     Active Substance: METHYLPREDNISOLONE
     Dosage: 1 G, QD  (RE-STARTED ON 25 APR DONE 2 DAYS)
     Route: 065
  6. METHYLPREDNISOLONE [Concomitant]
     Active Substance: METHYLPREDNISOLONE
     Dosage: 1 MG/KG (TODAY)
     Route: 065
  7. IMMUNOGLOBULIN [Concomitant]
     Indication: Product used for unknown indication
     Dosage: 1 GRAM PER KILOGRAM, QD (22-APR)
     Route: 065
  8. IMMUNOGLOBULIN [Concomitant]
     Dosage: 1 GRAM PER KILOGRAM, QD (23-APR)
     Route: 065

REACTIONS (27)
  - Sinus tachycardia [Unknown]
  - Febrile neutropenia [Unknown]
  - Hyperbilirubinaemia [Unknown]
  - Metastases to pancreas [Unknown]
  - Haemophagocytic lymphohistiocytosis [Unknown]
  - Pancreatitis necrotising [Unknown]
  - Pancreatitis [Unknown]
  - Metastases to pleura [Unknown]
  - Metastases to liver [Unknown]
  - Metastases to retroperitoneum [Unknown]
  - Diffuse large B-cell lymphoma [Unknown]
  - Malignant neoplasm progression [Unknown]
  - Blood triglycerides increased [Unknown]
  - Hepatomegaly [Unknown]
  - Aspartate aminotransferase increased [Unknown]
  - Alanine aminotransferase increased [Unknown]
  - Hepatic lesion [Unknown]
  - Oral candidiasis [Unknown]
  - Mucosal inflammation [Unknown]
  - Oliguria [Unknown]
  - Serum ferritin increased [Unknown]
  - Blood albumin decreased [Unknown]
  - Haemoglobin decreased [Unknown]
  - Platelet count decreased [Unknown]
  - Blood lactate dehydrogenase increased [Unknown]
  - Pyrexia [Unknown]
  - Abdominal pain [Unknown]

NARRATIVE: CASE EVENT DATE: 20230201
